FAERS Safety Report 12091606 (Version 1)
Quarter: 2016Q1

REPORT INFORMATION
  Report Type: Spontaneous
  Country: BR (occurrence: BR)
  Receive Date: 20160218
  Receipt Date: 20160218
  Transmission Date: 20160526
  Serious: Yes (Other)
  Sender: FDA-Public Use
  Company Number: PHHY2015BR174434

PATIENT
  Age: 51 Year
  Sex: Female

DRUGS (4)
  1. SELOZOK [Suspect]
     Active Substance: METOPROLOL SUCCINATE
     Indication: PRODUCT USED FOR UNKNOWN INDICATION
     Route: 065
  2. DIOVAN [Suspect]
     Active Substance: VALSARTAN
     Indication: PRODUCT USED FOR UNKNOWN INDICATION
     Route: 065
  3. SYNVISC [Suspect]
     Active Substance: HYALURONATE SODIUM
     Indication: PRODUCT USED FOR UNKNOWN INDICATION
     Dosage: 6 DF (APPLICATIONS) ? DIVIDED IN THREE CONSECUTIVE WEEKS
     Route: 065
  4. SIMVASTATIN. [Suspect]
     Active Substance: SIMVASTATIN
     Indication: PRODUCT USED FOR UNKNOWN INDICATION
     Route: 065

REACTIONS (7)
  - Rheumatoid arthritis [Unknown]
  - Dysstasia [Unknown]
  - Pain [Unknown]
  - Hypertension [Unknown]
  - Cerebrovascular accident [Unknown]
  - Gait disturbance [Unknown]
  - Premature ageing [Unknown]
